FAERS Safety Report 9476735 (Version 2)
Quarter: 2013Q3

REPORT INFORMATION
  Report Type: Spontaneous
  Country: US (occurrence: US)
  Receive Date: 20130826
  Receipt Date: 20130826
  Transmission Date: 20140515
  Serious: Yes (Other)
  Sender: FDA-Public Use
  Company Number: US-BRISTOL-MYERS SQUIBB COMPANY-18595546

PATIENT
  Age: 57 Year
  Sex: Male
  Weight: 79.36 kg

DRUGS (3)
  1. KENALOG-40 INJ [Suspect]
     Dosage: 80MG IN 2ML
     Route: 008
     Dates: start: 20130227
  2. NEXIUM [Concomitant]
  3. LORTAB [Concomitant]

REACTIONS (2)
  - Psychotic disorder [Not Recovered/Not Resolved]
  - Off label use [Unknown]
